FAERS Safety Report 16252043 (Version 1)
Quarter: 2019Q2

REPORT INFORMATION
  Report Type: Spontaneous
  Country: JP (occurrence: JP)
  Receive Date: 20190429
  Receipt Date: 20190429
  Transmission Date: 20190711
  Serious: Yes (Death)
  Sender: FDA-Public Use
  Company Number: JP-JNJFOC-20190433583

PATIENT
  Age: 56 Year
  Sex: Female

DRUGS (8)
  1. ABILIFY [Suspect]
     Active Substance: ARIPIPRAZOLE
     Indication: PRODUCT USED FOR UNKNOWN INDICATION
     Route: 048
     Dates: start: 20180823
  2. LEXOTAN [Concomitant]
     Active Substance: BROMAZEPAM
     Route: 048
     Dates: start: 20180927, end: 20190319
  3. LANDSEN [Concomitant]
     Active Substance: CLONAZEPAM
     Route: 048
  4. INVEGA [Suspect]
     Active Substance: PALIPERIDONE
     Indication: PRODUCT USED FOR UNKNOWN INDICATION
     Route: 048
     Dates: start: 20180713, end: 20180724
  5. BENZALIN [Concomitant]
     Route: 048
     Dates: start: 20180621, end: 20190319
  6. REXULTI [Suspect]
     Active Substance: BREXPIPRAZOLE
     Indication: SCHIZOPHRENIA
     Route: 048
     Dates: start: 20190314, end: 20190319
  7. INVEGA [Suspect]
     Active Substance: PALIPERIDONE
     Indication: PRODUCT USED FOR UNKNOWN INDICATION
     Route: 048
     Dates: start: 20180725, end: 20180822
  8. ABILIFY [Suspect]
     Active Substance: ARIPIPRAZOLE
     Indication: PRODUCT USED FOR UNKNOWN INDICATION
     Route: 048
     Dates: start: 20180927, end: 20190319

REACTIONS (3)
  - Headache [Fatal]
  - Atonic seizures [Fatal]
  - Nausea [Fatal]

NARRATIVE: CASE EVENT DATE: 20190314
